FAERS Safety Report 22298960 (Version 2)
Quarter: 2023Q2

REPORT INFORMATION
  Report Type: Report from Study
  Country: CA (occurrence: CA)
  Receive Date: 20230509
  Receipt Date: 20230522
  Transmission Date: 20230722
  Serious: Yes (Hospitalization)
  Sender: FDA-Public Use
  Company Number: CA-BAUSCH-BL-2022-026121

PATIENT
  Age: 57 Year
  Sex: Female

DRUGS (8)
  1. CONTRAVE [Suspect]
     Active Substance: BUPROPION HYDROCHLORIDE\NALTREXONE HYDROCHLORIDE
     Indication: Weight control
     Dosage: 90/8 MG , 1TAB QAM
     Route: 048
     Dates: start: 20221122
  2. CONTRAVE [Suspect]
     Active Substance: BUPROPION HYDROCHLORIDE\NALTREXONE HYDROCHLORIDE
     Dosage: 90/8 MG , 4 TABS/DAY (2 DOSAGE FORMS,1 IN 12 HR)
     Route: 048
     Dates: end: 20230201
  3. CONTRAVE [Suspect]
     Active Substance: BUPROPION HYDROCHLORIDE\NALTREXONE HYDROCHLORIDE
     Dosage: 90/8 MG , 1 TAB Q AM
     Route: 048
     Dates: start: 20230205, end: 20230211
  4. CONTRAVE [Suspect]
     Active Substance: BUPROPION HYDROCHLORIDE\NALTREXONE HYDROCHLORIDE
     Dosage: 90/8 MG, 1 TAB QAM, 1 TAB QPM
     Route: 048
     Dates: start: 20230212, end: 20230218
  5. CONTRAVE [Suspect]
     Active Substance: BUPROPION HYDROCHLORIDE\NALTREXONE HYDROCHLORIDE
     Dosage: 90/8 MG , 2TAB QAM, 2TAB QPM
     Route: 048
     Dates: start: 20230219, end: 20230225
  6. CONTRAVE [Suspect]
     Active Substance: BUPROPION HYDROCHLORIDE\NALTREXONE HYDROCHLORIDE
     Dosage: 90/8 MG , 2TAB QAM, 2TAB QPM
     Route: 048
     Dates: start: 20230226
  7. MAGNESIUM CITRATE [Suspect]
     Active Substance: MAGNESIUM CITRATE
     Indication: Constipation
     Dosage: CITROMAG
     Route: 065
     Dates: start: 20230415, end: 20230415
  8. PANTOPRAZOLE MAGNESIUM [Concomitant]
     Active Substance: PANTOPRAZOLE MAGNESIUM
     Indication: Product used for unknown indication
     Dosage: UNK

REACTIONS (21)
  - Concussion [Unknown]
  - Head injury [Unknown]
  - Fall [Unknown]
  - Loss of consciousness [Unknown]
  - Food craving [Recovered/Resolved]
  - Symptom recurrence [Recovered/Resolved]
  - Muscle spasms [Unknown]
  - Hypotension [Unknown]
  - Stress [Unknown]
  - Dehydration [Recovering/Resolving]
  - Abnormal dreams [Unknown]
  - Feeling abnormal [Recovered/Resolved]
  - Thirst [Unknown]
  - Dry mouth [Not Recovered/Not Resolved]
  - Constipation [Recovering/Resolving]
  - Nausea [Unknown]
  - Middle insomnia [Not Recovered/Not Resolved]
  - Intentional product use issue [Unknown]
  - Therapy interrupted [Unknown]
  - Therapeutic response unexpected [Unknown]
  - Therapeutic product effect decreased [Unknown]

NARRATIVE: CASE EVENT DATE: 20221123
